FAERS Safety Report 23127192 (Version 4)
Quarter: 2024Q1

REPORT INFORMATION
  Report Type: Spontaneous
  Country: ES (occurrence: ES)
  Receive Date: 20231030
  Receipt Date: 20240213
  Transmission Date: 20240409
  Serious: Yes (Death, Other)
  Sender: FDA-Public Use
  Company Number: None

PATIENT

DRUGS (5)
  1. CYCLOPHOSPHAMIDE [Suspect]
     Active Substance: CYCLOPHOSPHAMIDE
     Indication: Prophylaxis against graft versus host disease
     Dosage: 50 MG/KG, QD  DAYS +3 AND +4)
     Route: 042
  2. FLUDARABINE PHOSPHATE [Suspect]
     Active Substance: FLUDARABINE PHOSPHATE
     Dosage: 120 MG/M2
     Route: 048
  3. FLUDARABINE PHOSPHATE [Suspect]
     Active Substance: FLUDARABINE PHOSPHATE
     Indication: Bone marrow conditioning regimen
     Dosage: 90 MG/M2
     Route: 048
  4. TACROLIMUS [Suspect]
     Active Substance: TACROLIMUS
     Indication: Prophylaxis against graft versus host disease
     Route: 065
  5. ACYCLOVIR [Concomitant]
     Active Substance: ACYCLOVIR
     Indication: Antiviral prophylaxis
     Dosage: 400 MG TWICE DAILY INTRAVENOUSLY OR ITS EQUIVALENT ORAL DOSES (LOW-DOSE)
     Route: 042

REACTIONS (3)
  - Aspergillus infection [Fatal]
  - Central nervous system fungal infection [Fatal]
  - Off label use [Fatal]
